FAERS Safety Report 17221321 (Version 2)
Quarter: 2021Q1

REPORT INFORMATION
  Report Type: Spontaneous
  Country: US (occurrence: US)
  Receive Date: 20191231
  Receipt Date: 20210217
  Transmission Date: 20210419
  Serious: Yes (Other)
  Sender: FDA-Public Use
  Company Number: US-ASTRAZENECA-2019SF89635

PATIENT
  Age: 63 Year
  Sex: Male
  Weight: 113.4 kg

DRUGS (34)
  1. NEXIUM [Suspect]
     Active Substance: ESOMEPRAZOLE MAGNESIUM
     Indication: GASTROOESOPHAGEAL REFLUX DISEASE
     Route: 048
     Dates: start: 2001, end: 2018
  2. PREGABALIN. [Concomitant]
     Active Substance: PREGABALIN
     Indication: NEURALGIA
     Route: 065
     Dates: start: 2000
  3. TRAMADOL. [Concomitant]
     Active Substance: TRAMADOL
  4. MONTELUKAST [Concomitant]
     Active Substance: MONTELUKAST SODIUM
     Indication: MULTIPLE ALLERGIES
     Route: 065
     Dates: start: 2005
  5. VITAMIN D [Concomitant]
     Active Substance: VITAMIN D NOS
     Indication: ROUTINE HEALTH MAINTENANCE
     Route: 065
     Dates: start: 2018
  6. PEPCID [Concomitant]
     Active Substance: FAMOTIDINE
  7. ZANTAC [Concomitant]
     Active Substance: RANITIDINE HYDROCHLORIDE
  8. TUMS [Concomitant]
     Active Substance: CALCIUM CARBONATE
  9. BROMPHENIR [Concomitant]
  10. METFORMIN [Concomitant]
     Active Substance: METFORMIN HYDROCHLORIDE
     Indication: DIABETES MELLITUS
     Route: 065
     Dates: start: 2012
  11. VALSARTAN. [Concomitant]
     Active Substance: VALSARTAN
     Indication: HYPERTENSION
     Route: 065
     Dates: start: 2015
  12. METRONIDAZOLE. [Concomitant]
     Active Substance: METRONIDAZOLE
  13. PROMETHAZINE [Concomitant]
     Active Substance: PROMETHAZINE HYDROCHLORIDE
  14. AZITHROMYCIN ANHYDROUS. [Concomitant]
     Active Substance: AZITHROMYCIN ANHYDROUS
  15. BACLOFEN. [Concomitant]
     Active Substance: BACLOFEN
  16. GLYBURIDE. [Concomitant]
     Active Substance: GLYBURIDE
     Indication: DIABETES MELLITUS
     Route: 065
     Dates: start: 2012
  17. NEXIUM [Suspect]
     Active Substance: ESOMEPRAZOLE MAGNESIUM
     Indication: GASTROOESOPHAGEAL REFLUX DISEASE
     Dosage: APPROXIMATELY 01/2000?03/2019
     Route: 048
     Dates: start: 200001, end: 201903
  18. NEXIUM [Suspect]
     Active Substance: ESOMEPRAZOLE MAGNESIUM
     Indication: GASTROOESOPHAGEAL REFLUX DISEASE
     Dosage: GENERIC
     Route: 065
     Dates: start: 2016
  19. MILK OF MAGNESIA [Concomitant]
     Active Substance: MAGNESIUM HYDROXIDE
  20. CIPROFLOXACIN. [Concomitant]
     Active Substance: CIPROFLOXACIN
  21. KETOROLAC [Concomitant]
     Active Substance: KETOROLAC TROMETHAMINE
  22. LEVITRA [Concomitant]
     Active Substance: VARDENAFIL HYDROCHLORIDE
  23. DULOXETINE. [Concomitant]
     Active Substance: DULOXETINE
  24. ROSUVASTATIN. [Concomitant]
     Active Substance: ROSUVASTATIN
     Indication: BLOOD CHOLESTEROL INCREASED
     Route: 065
     Dates: start: 2005
  25. MAGNESIUM OXIDE. [Concomitant]
     Active Substance: MAGNESIUM OXIDE
     Indication: ROUTINE HEALTH MAINTENANCE
     Route: 065
     Dates: start: 2018
  26. PEPTO?BISMOL [Concomitant]
     Active Substance: BISMUTH SUBSALICYLATE
  27. MOMETASONE [Concomitant]
     Active Substance: MOMETASONE
  28. LISINOPRIL. [Concomitant]
     Active Substance: LISINOPRIL
  29. MELOXICAM. [Concomitant]
     Active Substance: MELOXICAM
  30. HYDROCODONE [Concomitant]
     Active Substance: HYDROCODONE
     Indication: PAIN
     Route: 065
     Dates: start: 2018
  31. CARVEDILOL. [Concomitant]
     Active Substance: CARVEDILOL
     Indication: HYPERTENSION
     Route: 065
     Dates: start: 2018
  32. PIOGLITAZONE. [Concomitant]
     Active Substance: PIOGLITAZONE
     Indication: DIABETES MELLITUS
     Route: 065
     Dates: start: 2018
  33. ZYRTEC [Concomitant]
     Active Substance: CETIRIZINE HYDROCHLORIDE
     Indication: MULTIPLE ALLERGIES
     Route: 065
     Dates: start: 2005
  34. LYRICA [Concomitant]
     Active Substance: PREGABALIN

REACTIONS (2)
  - Gastrooesophageal reflux disease [Not Recovered/Not Resolved]
  - Chronic kidney disease [Not Recovered/Not Resolved]

NARRATIVE: CASE EVENT DATE: 2018
